FAERS Safety Report 5082566-4 (Version None)
Quarter: 2006Q3

REPORT INFORMATION
  Report Type: 
  Country: None (occurrence: None)
  Receive Date: 20060817
  Receipt Date: 20060810
  Transmission Date: 20061208
  Serious: Yes (Disabling)
  Sender: FDA-Public Use
  Company Number: SI-JNJFOC-20060802741

PATIENT
  Age: 42 Year
  Sex: Female
  Weight: 68 kg

DRUGS (8)
  1. REMICADE [Suspect]
     Indication: ANKYLOSING SPONDYLITIS
     Route: 042
  2. NAKLOFEN [Concomitant]
     Route: 065
  3. NEXIUM [Concomitant]
     Route: 065
  4. TRAMADOL HCL [Concomitant]
     Route: 065
  5. NASONEX [Concomitant]
     Route: 065
  6. MIGRAN [Concomitant]
     Route: 065
  7. TORECAN [Concomitant]
     Route: 065
  8. MOVALIS [Concomitant]
     Route: 065

REACTIONS (4)
  - ARTHRALGIA [None]
  - JOINT SWELLING [None]
  - PNEUMONIA [None]
  - TENDON DISORDER [None]
